FAERS Safety Report 14954224 (Version 1)
Quarter: 2018Q2

REPORT INFORMATION
  Report Type: Spontaneous
  Country: AU (occurrence: AU)
  Receive Date: 20180530
  Receipt Date: 20180530
  Transmission Date: 20180711
  Serious: Yes (Hospitalization)
  Sender: FDA-Public Use
  Company Number: AU-MYLANLABS-2018M1036024

PATIENT
  Age: 56 Year
  Sex: Female

DRUGS (6)
  1. OSELTAMIVIR [Concomitant]
     Active Substance: OSELTAMIVIR
     Indication: PARAINFLUENZAE VIRUS INFECTION
     Route: 065
  2. CEFEPIME [Suspect]
     Active Substance: CEFEPIME HYDROCHLORIDE
     Indication: RESPIRATORY TRACT INFECTION
     Route: 065
  3. SULPHAMETHOXAZOLE/TRIMETHOPRIM [Suspect]
     Active Substance: SULFAMETHOXAZOLE\TRIMETHOPRIM
     Indication: PROPHYLAXIS
     Dosage: TRIMETHOPRIM/SULFAMETHOXAZOLE: 40MG/80MG DAILY
     Route: 065
  4. FLUCONAZOLE. [Concomitant]
     Active Substance: FLUCONAZOLE
     Indication: PROPHYLAXIS
     Route: 065
  5. MEROPENEM. [Concomitant]
     Active Substance: MEROPENEM
     Indication: PARAINFLUENZAE VIRUS INFECTION
     Route: 065
  6. VALACICLOVIR [Concomitant]
     Active Substance: VALACYCLOVIR HYDROCHLORIDE
     Indication: PROPHYLAXIS
     Route: 065

REACTIONS (6)
  - Pancytopenia [None]
  - Drug reaction with eosinophilia and systemic symptoms [Recovered/Resolved]
  - Lymphopenia [None]
  - Thrombocytopenia [None]
  - Marrow hyperplasia [None]
  - Lymphocyte morphology abnormal [None]
